FAERS Safety Report 6126874-4 (Version None)
Quarter: 2009Q1

REPORT INFORMATION
  Report Type: 
  Country: None (occurrence: None)
  Receive Date: 20090320
  Receipt Date: 20080828
  Transmission Date: 20090719
  Serious: No
  Sender: FDA-Public Use
  Company Number: US-ABBOTT-08P-163-0473137-00

PATIENT
  Sex: Female

DRUGS (2)
  1. ERYTHROMYCIN [Suspect]
     Indication: GASTROINTESTINAL DISORDER
     Route: 048
  2. BISMUTH SUBSALICYLATE IN OIL INJ [Suspect]
     Indication: GASTROINTESTINAL DISORDER
     Dosage: 1 BOTTLE PER DAY
     Route: 048

REACTIONS (3)
  - RASH [None]
  - THINKING ABNORMAL [None]
  - THROAT TIGHTNESS [None]
